FAERS Safety Report 6554710-0 (Version None)
Quarter: 2010Q1

REPORT INFORMATION
  Report Type: 
  Country: None (occurrence: None)
  Receive Date: 20100127
  Receipt Date: 20091207
  Transmission Date: 20100710
  Serious: Yes (Hospitalization)
  Sender: FDA-Public Use
  Company Number: FR-SANOFI-AVENTIS-2009SA011293

PATIENT
  Age: 74 Year

DRUGS (6)
  1. OXALIPLATIN [Suspect]
     Indication: COLON CANCER
     Route: 041
     Dates: start: 20080204, end: 20080204
  2. CETUXIMAB [Suspect]
     Indication: COLON CANCER
     Route: 042
     Dates: start: 20080204, end: 20080204
  3. FLUOROURACIL [Suspect]
     Indication: COLON CANCER
     Route: 042
     Dates: start: 20080204, end: 20080204
  4. FOLINIC ACID [Suspect]
     Indication: COLON CANCER
     Route: 041
     Dates: start: 20080204, end: 20080204
  5. CLOPIDOGREL [Concomitant]
     Dates: start: 19990101, end: 20080121
  6. ENOXAPARIN SODIUM [Concomitant]
     Dates: start: 20080121, end: 20080211

REACTIONS (1)
  - TRANSIENT ISCHAEMIC ATTACK [None]
